FAERS Safety Report 4584560-6 (Version None)
Quarter: 2005Q1

REPORT INFORMATION
  Report Type: 
  Country: None (occurrence: None)
  Receive Date: 20050125
  Receipt Date: 20040916
  Transmission Date: 20050727
  Serious: No
  Sender: FDA-Public Use
  Company Number: USA040465991

PATIENT
  Age: 57 Year
  Sex: Female

DRUGS (4)
  1. FORTEO [Suspect]
     Indication: OSTEOPOROSIS
     Dosage: 20 UG DAY
     Dates: start: 20040424
  2. AMITRIPTYLINE HCL [Concomitant]
  3. VITAMIN NOS [Concomitant]
  4. THYROID MEDICINE [Concomitant]

REACTIONS (3)
  - FATIGUE [None]
  - INITIAL INSOMNIA [None]
  - SOMNOLENCE [None]
